FAERS Safety Report 8172477-X (Version None)
Quarter: 2012Q1

REPORT INFORMATION
  Report Type: 
  Country: None (occurrence: None)
  Receive Date: 20120227
  Receipt Date: 20120227
  Transmission Date: 20120608
  Serious: Yes (Other)
  Sender: FDA-Public Use
  Company Number: None

PATIENT
  Age: 70 Year
  Sex: Female

DRUGS (8)
  1. IBUPROFEN [Concomitant]
  2. LEVOTHYROXINE SODIUM [Concomitant]
  3. ACYCLOVIR [Concomitant]
  4. PREDNISONE TAB [Concomitant]
  5. REVLIMID [Suspect]
     Indication: MULTIPLE MYELOMA
     Dosage: 5 MG DAILY X 21/28 DAYS BY MOUTH
     Route: 048
     Dates: start: 20080601, end: 20090901
  6. REVLIMID [Suspect]
     Indication: MULTIPLE MYELOMA
     Dosage: 5 MG DAILY X 21/28 DAYS BY MOUTH
     Route: 048
     Dates: start: 20101201, end: 20110801
  7. REVLIMID [Suspect]
     Indication: MULTIPLE MYELOMA
     Dosage: 5 MG DAILY X 21/28 DAYS BY MOUTH
     Route: 048
     Dates: start: 20100301, end: 20100501
  8. FAMOTIDINE [Concomitant]

REACTIONS (1)
  - PLASMACYTOMA [None]
